FAERS Safety Report 12841303 (Version 8)
Quarter: 2017Q2

REPORT INFORMATION
  Report Type: Report from Study
  Country: US (occurrence: US)
  Receive Date: 20161012
  Receipt Date: 20170523
  Transmission Date: 20170830
  Serious: Yes (Other)
  Sender: FDA-Public Use
  Company Number: US-ACTELION-A-US2016-143567

PATIENT
  Age: 71 Year
  Sex: Female
  Weight: 66.67 kg

DRUGS (6)
  1. TYVASO [Concomitant]
     Active Substance: TREPROSTINIL
  2. LETAIRIS [Concomitant]
     Active Substance: AMBRISENTAN
  3. VELETRI [Suspect]
     Active Substance: EPOPROSTENOL
     Indication: PULMONARY ARTERIAL HYPERTENSION
     Dosage: 14.75 NG/KG, PER MIN
     Route: 042
     Dates: start: 20151116
  4. VELETRI [Suspect]
     Active Substance: EPOPROSTENOL
     Dosage: 16.25 NG/KG, PER MIN
     Route: 042
  5. VELETRI [Suspect]
     Active Substance: EPOPROSTENOL
     Dosage: 8 NG/KG, PER MIN
     Route: 042
  6. SILDENAFIL. [Concomitant]
     Active Substance: SILDENAFIL

REACTIONS (14)
  - Peripheral swelling [Unknown]
  - Renal transplant failure [Unknown]
  - Renal failure [Unknown]
  - Medical device site extravasation [Unknown]
  - Oedema [Unknown]
  - Metabolic acidosis [Unknown]
  - Diarrhoea [Unknown]
  - Hypotension [Unknown]
  - Oedema peripheral [Not Recovered/Not Resolved]
  - Dialysis [Unknown]
  - Cough [Unknown]
  - Dyspnoea exertional [Unknown]
  - Dyspnoea [Unknown]
  - Sinus disorder [Unknown]

NARRATIVE: CASE EVENT DATE: 20160905
